FAERS Safety Report 7633112-X (Version None)
Quarter: 2011Q3

REPORT INFORMATION
  Report Type: 
  Country: None (occurrence: None)
  Receive Date: 20110725
  Receipt Date: 20110720
  Transmission Date: 20111222
  Serious: Yes (Life-Threatening, Hospitalization, Other)
  Sender: FDA-Public Use
  Company Number: PHFR2011GB02753

PATIENT
  Sex: Female
  Weight: 104 kg

DRUGS (3)
  1. QUETIAPINE [Suspect]
     Dosage: 800 MG/DAY
     Route: 048
  2. CLOZAPINE [Suspect]
     Indication: SCHIZOPHRENIA
     Dosage: 300 MG/DAY
     Route: 048
     Dates: start: 20110329
  3. QUETIAPINE [Suspect]
     Dosage: 800 MG/DAY
     Route: 048

REACTIONS (5)
  - ASTHMA [None]
  - DYSPNOEA [None]
  - PULMONARY EMBOLISM [None]
  - SCHIZOPHRENIA [None]
  - RESPIRATORY DISORDER [None]
